FAERS Safety Report 6242508-2 (Version None)
Quarter: 2009Q2

REPORT INFORMATION
  Report Type: 
  Country: None (occurrence: None)
  Receive Date: 20090622
  Receipt Date: 20090622
  Transmission Date: 20091009
  Serious: Yes (Other)
  Sender: FDA-Public Use
  Company Number: None

PATIENT
  Sex: Male
  Weight: 92.9874 kg

DRUGS (1)
  1. CHANTIX [Suspect]
     Indication: SMOKING CESSATION THERAPY
     Dosage: ONE TAB TWICE DAILY PO
     Route: 048
     Dates: start: 20090101, end: 20090518

REACTIONS (4)
  - ANXIETY [None]
  - DEPRESSION [None]
  - FEAR [None]
  - PARANOIA [None]
